FAERS Safety Report 18916709 (Version 3)
Quarter: 2022Q4

REPORT INFORMATION
  Report Type: Report from Study
  Country: US (occurrence: US)
  Receive Date: 20210219
  Receipt Date: 20221213
  Transmission Date: 20230113
  Serious: Yes (Other)
  Sender: FDA-Public Use
  Company Number: US-PFIZER INC-2021161419

PATIENT
  Age: 61 Year
  Sex: Male
  Weight: 90.7 kg

DRUGS (10)
  1. XANAX [Suspect]
     Active Substance: ALPRAZOLAM
     Indication: Product used for unknown indication
     Dosage: UNK UNK, BID
     Route: 065
  2. CELEBREX [Suspect]
     Active Substance: CELECOXIB
     Indication: Product used for unknown indication
     Dosage: UNK
     Route: 065
  3. MORPHINE SULFATE [Suspect]
     Active Substance: MORPHINE SULFATE
     Indication: Procedural pain
     Dosage: UNK UNK, BID
     Route: 065
  4. JAKAFI [Suspect]
     Active Substance: RUXOLITINIB
     Indication: Myelofibrosis
     Dosage: 15 MILLIGRAM, BID, (8 AM AND 8 PM)
     Route: 048
  5. JAKAFI [Suspect]
     Active Substance: RUXOLITINIB
     Dosage: 15 MILLIGRAM, BID
     Route: 048
     Dates: start: 20200613
  6. JAKAFI [Suspect]
     Active Substance: RUXOLITINIB
     Dosage: 15 MILLIGRAM, BID
     Route: 048
  7. JAKAFI [Suspect]
     Active Substance: RUXOLITINIB
     Dosage: 10 MILLIGRAM, BID
     Route: 048
  8. ALBUTEROL [Concomitant]
     Active Substance: ALBUTEROL
     Indication: Product used for unknown indication
     Dosage: UNK
     Route: 065
  9. ALLOPURINOL [Concomitant]
     Active Substance: ALLOPURINOL
     Indication: Product used for unknown indication
     Dosage: UNK
     Route: 065
  10. MIRALAX [Concomitant]
     Active Substance: POLYETHYLENE GLYCOL 3350
     Indication: Product used for unknown indication
     Dosage: UNK
     Route: 065

REACTIONS (53)
  - Lower respiratory tract infection [Not Recovered/Not Resolved]
  - Skin cancer [Unknown]
  - Fatigue [Not Recovered/Not Resolved]
  - Therapeutic response unexpected [Not Recovered/Not Resolved]
  - Hypersomnia [Not Recovered/Not Resolved]
  - Insomnia [Not Recovered/Not Resolved]
  - Feeling abnormal [Not Recovered/Not Resolved]
  - Lip swelling [Not Recovered/Not Resolved]
  - Pain [Not Recovered/Not Resolved]
  - Arthralgia [Not Recovered/Not Resolved]
  - Sleep disorder [Not Recovered/Not Resolved]
  - Sleep apnoea syndrome [Not Recovered/Not Resolved]
  - Tooth infection [Not Recovered/Not Resolved]
  - Sinusitis [Not Recovered/Not Resolved]
  - Dental caries [Not Recovered/Not Resolved]
  - Rash pruritic [Unknown]
  - Bowel movement irregularity [Not Recovered/Not Resolved]
  - Gastrointestinal disorder [Unknown]
  - Faeces discoloured [Unknown]
  - Abdominal discomfort [Unknown]
  - Dyschezia [Unknown]
  - Aphthous ulcer [Unknown]
  - Tooth fracture [Unknown]
  - Toothache [Unknown]
  - Splenomegaly [Recovering/Resolving]
  - Haemoglobin decreased [Not Recovered/Not Resolved]
  - Depression [Unknown]
  - Mastication disorder [Unknown]
  - Wound haemorrhage [Unknown]
  - Weight decreased [Not Recovered/Not Resolved]
  - Illness [Not Recovered/Not Resolved]
  - Stress [Not Recovered/Not Resolved]
  - Sputum increased [Not Recovered/Not Resolved]
  - Sputum discoloured [Not Recovered/Not Resolved]
  - Haemoptysis [Not Recovered/Not Resolved]
  - Oral candidiasis [Not Recovered/Not Resolved]
  - Immune system disorder [Unknown]
  - Tongue disorder [Recovering/Resolving]
  - Dehydration [Unknown]
  - Dry mouth [Unknown]
  - Ill-defined disorder [Unknown]
  - Procedural pain [Unknown]
  - Mobility decreased [Unknown]
  - Dizziness [Not Recovered/Not Resolved]
  - Balance disorder [Unknown]
  - Platelet count decreased [Unknown]
  - Muscle spasms [Not Recovered/Not Resolved]
  - Headache [Not Recovered/Not Resolved]
  - Red blood cell count decreased [Not Recovered/Not Resolved]
  - Asthenia [Unknown]
  - Swollen tongue [Recovering/Resolving]
  - Constipation [Recovering/Resolving]
  - Condition aggravated [Unknown]

NARRATIVE: CASE EVENT DATE: 20200701
